FAERS Safety Report 15452158 (Version 1)
Quarter: 2018Q4

REPORT INFORMATION
  Report Type: Spontaneous
  Country: GB (occurrence: GB)
  Receive Date: 20181001
  Receipt Date: 20181001
  Transmission Date: 20190204
  Serious: Yes (Other)
  Sender: FDA-Public Use
  Company Number: GB-PFIZER INC-2018385743

PATIENT
  Age: 83 Year
  Sex: Female

DRUGS (17)
  1. ALVERINE [Concomitant]
     Active Substance: ALVERINE
  2. IBUPROFEN. [Concomitant]
     Active Substance: IBUPROFEN
     Route: 061
  3. METOPROLOL FUMARATE [Concomitant]
     Active Substance: METOPROLOL FUMARATE
  4. LEVOTHYROXINE SODIUM. [Concomitant]
     Active Substance: LEVOTHYROXINE SODIUM
  5. SERTRALINE HCL [Suspect]
     Active Substance: SERTRALINE HYDROCHLORIDE
     Dosage: 100 MG, 1X/DAY
     Route: 048
  6. MONOMIL [Concomitant]
     Active Substance: ISOSORBIDE MONONITRATE
  7. SIMVASTATIN. [Concomitant]
     Active Substance: SIMVASTATIN
  8. RAMIPRIL. [Concomitant]
     Active Substance: RAMIPRIL
  9. FUROSEMIDE. [Concomitant]
     Active Substance: FUROSEMIDE
  10. LORATADINE. [Concomitant]
     Active Substance: LORATADINE
  11. XARELTO [Suspect]
     Active Substance: RIVAROXABAN
     Indication: ATRIAL FIBRILLATION
     Dosage: 15 MG, 1X/DAY
     Route: 048
  12. SALBUTAMOL [Concomitant]
     Active Substance: ALBUTEROL
  13. FLIXOTIDE [Concomitant]
     Active Substance: FLUTICASONE PROPIONATE
  14. ALLOPURINOL. [Concomitant]
     Active Substance: ALLOPURINOL
  15. AMLODIPINE [Concomitant]
     Active Substance: AMLODIPINE BESYLATE
  16. DOXAZOSIN [Concomitant]
     Active Substance: DOXAZOSIN\DOXAZOSIN MESYLATE
  17. LANSOPRAZOLE. [Concomitant]
     Active Substance: LANSOPRAZOLE

REACTIONS (7)
  - Gastrointestinal haemorrhage [Recovering/Resolving]
  - Blood creatinine increased [Unknown]
  - Haemoglobin decreased [Unknown]
  - Gastric ulcer [Unknown]
  - Faeces discoloured [Unknown]
  - Asthenia [Unknown]
  - Abdominal discomfort [Unknown]
